FAERS Safety Report 24351612 (Version 1)
Quarter: 2024Q3

REPORT INFORMATION
  Report Type: Report from Study
  Country: EG (occurrence: EG)
  Receive Date: 20240923
  Receipt Date: 20240923
  Transmission Date: 20241017
  Serious: No
  Sender: ROCHE
  Company Number: EG-ROCHE-3556302

PATIENT
  Age: 58 Year
  Sex: Female

DRUGS (24)
  1. HERCEPTIN [Suspect]
     Active Substance: TRASTUZUMAB
     Indication: Breast cancer
     Route: 041
     Dates: start: 20220721, end: 20220830
  2. HERCEPTIN [Suspect]
     Active Substance: TRASTUZUMAB
     Route: 041
     Dates: start: 20220830
  3. XELODA [Suspect]
     Active Substance: CAPECITABINE
     Indication: Breast cancer
     Dosage: BID FOR 2 WEEKS THEN EVERY 3 WEEKS
     Route: 048
     Dates: start: 20210104, end: 20220629
  4. TAXOL [Suspect]
     Active Substance: PACLITAXEL
     Indication: Breast cancer
     Route: 042
     Dates: start: 20220721, end: 20230409
  5. TYKERB [Suspect]
     Active Substance: LAPATINIB DITOSYLATE
     Indication: Breast cancer
     Route: 048
     Dates: start: 20210104, end: 20220720
  6. ARIMIDEX [Suspect]
     Active Substance: ANASTROZOLE
     Indication: Breast cancer
     Route: 048
     Dates: start: 20230528
  7. GABAPENTIN [Concomitant]
     Active Substance: GABAPENTIN
     Indication: Palmar-plantar erythrodysaesthesia syndrome
     Route: 048
     Dates: start: 20210215, end: 20210228
  8. GABAPENTIN [Concomitant]
     Active Substance: GABAPENTIN
     Indication: Tumour pain
     Route: 048
     Dates: start: 20221011, end: 20221111
  9. GABAPENTIN [Concomitant]
     Active Substance: GABAPENTIN
     Route: 048
     Dates: start: 20240229
  10. TRAMADOL ER [Concomitant]
     Active Substance: TRAMADOL HYDROCHLORIDE
     Indication: Pain in extremity
     Route: 048
     Dates: start: 20220727, end: 20220730
  11. MORPHINE SULFATE [Concomitant]
     Active Substance: MORPHINE SULFATE
     Indication: Tumour pain
     Route: 048
     Dates: start: 20220911, end: 20220924
  12. MORPHINE SULFATE [Concomitant]
     Active Substance: MORPHINE SULFATE
     Route: 048
     Dates: start: 20220925, end: 20221010
  13. CELECOXIB [Concomitant]
     Active Substance: CELECOXIB
     Indication: Tumour pain
     Route: 048
     Dates: start: 20220911
  14. CELECOXIB [Concomitant]
     Active Substance: CELECOXIB
     Indication: Breast ulceration
     Route: 048
     Dates: start: 20221217
  15. CELECOXIB [Concomitant]
     Active Substance: CELECOXIB
     Route: 048
     Dates: start: 20240123, end: 20240206
  16. ACETAMINOPHEN [Concomitant]
     Active Substance: ACETAMINOPHEN
     Indication: Tumour pain
     Route: 048
     Dates: start: 20221011, end: 20221011
  17. ACETAMINOPHEN [Concomitant]
     Active Substance: ACETAMINOPHEN
     Indication: Breast ulceration
     Route: 048
     Dates: start: 20240123, end: 20240206
  18. ACETAMINOPHEN [Concomitant]
     Active Substance: ACETAMINOPHEN
     Route: 048
     Dates: start: 20240123, end: 20240206
  19. ACETAMINOPHEN [Concomitant]
     Active Substance: ACETAMINOPHEN
     Route: 048
     Dates: start: 20240229
  20. AMITRIPTYLINE HYDROCHLORIDE [Concomitant]
     Active Substance: AMITRIPTYLINE HYDROCHLORIDE
     Indication: Tumour pain
     Route: 048
     Dates: start: 20221111, end: 20221111
  21. PANTOPRAZOLE [Concomitant]
     Active Substance: PANTOPRAZOLE
     Indication: Breast ulceration
     Route: 048
     Dates: start: 20240123, end: 20240206
  22. DULOXETINE [Concomitant]
     Active Substance: DULOXETINE
     Indication: Breast ulceration
     Route: 048
     Dates: start: 20240123, end: 20240206
  23. DEXAMETHASONE [Concomitant]
     Active Substance: DEXAMETHASONE
     Indication: Seizure
     Route: 048
     Dates: start: 20240229, end: 20240309
  24. PHENYTOIN [Concomitant]
     Active Substance: PHENYTOIN
     Indication: Seizure
     Route: 048
     Dates: start: 20240229

REACTIONS (1)
  - Muscle spasms [Unknown]

NARRATIVE: CASE EVENT DATE: 20231226
